FAERS Safety Report 8616416 (Version 4)
Quarter: 2013Q2

REPORT INFORMATION
  Report Type: Spontaneous
  Country: US (occurrence: US)
  Receive Date: 20120615
  Receipt Date: 20130415
  Transmission Date: 20140414
  Serious: Yes (Hospitalization)
  Sender: FDA-Public Use
  Company Number: US-BIOGENIDEC-2012BI020671

PATIENT
  Age: 66 Year
  Sex: Female

DRUGS (5)
  1. TYSABRI [Suspect]
     Indication: MULTIPLE SCLEROSIS
     Route: 042
     Dates: start: 20070628
  2. AVONEX [Concomitant]
     Indication: MULTIPLE SCLEROSIS
     Route: 030
     Dates: start: 20011101
  3. AVONEX [Concomitant]
     Indication: MULTIPLE SCLEROSIS
     Route: 030
     Dates: start: 20070701
  4. PREVACID [Concomitant]
     Indication: OESOPHAGEAL DISORDER
  5. PRILOSEC [Concomitant]
     Indication: OESOPHAGEAL DISORDER

REACTIONS (7)
  - Intestinal obstruction [Unknown]
  - Incision site infection [Not Recovered/Not Resolved]
  - Abdominal pain upper [Recovered/Resolved]
  - Abdominal hernia [Recovered/Resolved]
  - Enteritis infectious [Recovered/Resolved]
  - White blood cell count increased [Recovered/Resolved]
  - Immune system disorder [Not Recovered/Not Resolved]
